FAERS Safety Report 21538016 (Version 2)
Quarter: 2022Q4

REPORT INFORMATION
  Report Type: Spontaneous
  Country: US (occurrence: US)
  Receive Date: 20221101
  Receipt Date: 20221202
  Transmission Date: 20230112
  Serious: No
  Sender: FDA-Public Use
  Company Number: US-BIOVITRUM-2022US12431

PATIENT
  Sex: Female
  Weight: 9 kg

DRUGS (3)
  1. SYNAGIS [Suspect]
     Active Substance: PALIVIZUMAB
     Indication: Bronchopulmonary dysplasia
     Dates: start: 20220930
  2. SYNAGIS [Suspect]
     Active Substance: PALIVIZUMAB
     Indication: Low birth weight baby
  3. LACTULOSE 10 G/10 ML SOLUTION [Concomitant]
     Dosage: 10G/15 ML SOLUTION

REACTIONS (3)
  - Wheezing [Unknown]
  - Respiratory syncytial virus test positive [Recovering/Resolving]
  - Product dose omission issue [Unknown]
